FAERS Safety Report 10404241 (Version 1)
Quarter: 2014Q1

REPORT INFORMATION
  Report Type: Spontaneous
  Country: US (occurrence: None)
  Receive Date: 20140130
  Receipt Date: 20140130
  Transmission Date: 20141002
  Serious: Yes (Hospitalization, Other)
  Sender: FDA-Public Use
  Company Number: US201201007950

PATIENT
  Age: 55 Year
  Sex: Female

DRUGS (1)
  1. BYETTA (EXENATIDE ) PEN, DISPOSABLE [Suspect]
     Route: 058

REACTIONS (1)
  - Pancreatitis acute [None]
